FAERS Safety Report 5412329-9 (Version None)
Quarter: 2007Q3

REPORT INFORMATION
  Report Type: 
  Country: None (occurrence: None)
  Receive Date: 20070713
  Receipt Date: 20070518
  Transmission Date: 20080115
  Serious: No
  Sender: FDA-Public Use
  Company Number: 2007SP001962

PATIENT
  Age: 58 Year
  Sex: Female
  Weight: 58.9676 kg

DRUGS (7)
  1. LUNESTA [Suspect]
     Indication: INSOMNIA
     Dosage: 3 MG;HS;ORAL, 1.5 MG;HS;ORAL, 2 MG;HS;ORAL
     Route: 048
     Dates: start: 20070101, end: 20070101
  2. LUNESTA [Suspect]
     Indication: INSOMNIA
     Dosage: 3 MG;HS;ORAL, 1.5 MG;HS;ORAL, 2 MG;HS;ORAL
     Route: 048
     Dates: start: 20070101, end: 20070401
  3. LUNESTA [Suspect]
     Indication: INSOMNIA
     Dosage: 3 MG;HS;ORAL, 1.5 MG;HS;ORAL, 2 MG;HS;ORAL
     Route: 048
     Dates: start: 20070401
  4. SYNTHROID [Concomitant]
  5. PREMPRO [Concomitant]
  6. VYTORIN [Concomitant]
  7. CYMBALTA [Concomitant]

REACTIONS (1)
  - FATIGUE [None]
